FAERS Safety Report 8694894 (Version 3)
Quarter: 2012Q4

REPORT INFORMATION
  Report Type: 
  Country: US (occurrence: US)
  Receive Date: 20120731
  Receipt Date: 20120828
  Transmission Date: 20130627
  Serious: Yes (Hospitalization, Other)
  Sender: FDA-Public Use
  Company Number: PHEH2012US001427

PATIENT
  Age: 33 Year
  Sex: Female
  Weight: 67.12 kg

DRUGS (2)
  1. GILENYA [Suspect]
     Indication: MULTIPLE SCLEROSIS
     Dosage: 0.5 mg, QD
     Route: 048
     Dates: start: 201108, end: 201201
  2. GILENYA [Suspect]
     Dosage: 0.5 mg, QD
     Route: 048
     Dates: start: 20120103, end: 20120423

REACTIONS (20)
  - Multiple sclerosis relapse [Unknown]
  - Abasia [Unknown]
  - Diplopia [Not Recovered/Not Resolved]
  - Musculoskeletal discomfort [Unknown]
  - Gait disturbance [Not Recovered/Not Resolved]
  - Road traffic accident [Unknown]
  - General physical health deterioration [Unknown]
  - Pain [Unknown]
  - Neck pain [Unknown]
  - Musculoskeletal stiffness [Recovered/Resolved]
  - Central nervous system lesion [Unknown]
  - Balance disorder [Unknown]
  - Feeling hot [Unknown]
  - Feeling abnormal [Unknown]
  - Tremor [Unknown]
  - Confusional state [Unknown]
  - Migraine [Unknown]
  - Vision blurred [Unknown]
  - Dizziness [Not Recovered/Not Resolved]
  - Asthenia [Unknown]
